FAERS Safety Report 7937502-7 (Version None)
Quarter: 2011Q4

REPORT INFORMATION
  Report Type: 
  Country: None (occurrence: None)
  Receive Date: 20111123
  Receipt Date: 20111114
  Transmission Date: 20120403
  Serious: Yes (Hospitalization)
  Sender: FDA-Public Use
  Company Number: FR-ASTRAZENECA-2011SE69738

PATIENT
  Age: 74 Year
  Sex: Female

DRUGS (6)
  1. PRAVASTATIN [Concomitant]
     Dates: start: 20101115
  2. ATENOLOL [Concomitant]
     Dates: start: 20101115, end: 20111023
  3. ASPIRIN [Concomitant]
     Dates: start: 20101115, end: 20111018
  4. GLICLAZIDE [Concomitant]
     Dates: start: 20101115
  5. NEXIUM [Suspect]
     Indication: ABDOMINAL PAIN UPPER
     Route: 048
     Dates: start: 20110831, end: 20111028
  6. MOLSIDOMINE [Concomitant]
     Dates: start: 20101115

REACTIONS (1)
  - CUTANEOUS LUPUS ERYTHEMATOSUS [None]
